FAERS Safety Report 6798321-0 (Version None)
Quarter: 2010Q2

REPORT INFORMATION
  Report Type: 
  Country: None (occurrence: None)
  Receive Date: 20100622
  Receipt Date: 20100609
  Transmission Date: 20101027
  Serious: Yes (Hospitalization)
  Sender: FDA-Public Use
  Company Number: CLOF-10591

PATIENT
  Age: 10 Year
  Sex: Male
  Weight: 51 kg

DRUGS (40)
  1. CLOFARABINE (CLOFARABINE) [Suspect]
     Indication: ACUTE LYMPHOCYTIC LEUKAEMIA
     Dosage: SEE IMAGE, INTRAVENOUS
     Route: 042
     Dates: start: 20060908, end: 20060912
  2. CLOFARABINE (CLOFARABINE) [Suspect]
     Indication: ACUTE LYMPHOCYTIC LEUKAEMIA
     Dosage: SEE IMAGE, INTRAVENOUS
     Route: 042
     Dates: start: 20061013, end: 20061016
  3. CLOFARABINE (CLOFARABINE) [Suspect]
     Indication: ACUTE LYMPHOCYTIC LEUKAEMIA
     Dosage: SEE IMAGE, INTRAVENOUS
     Route: 042
     Dates: start: 20061013, end: 20061016
  4. CLOFARABINE (CLOFARABINE) [Suspect]
     Indication: ACUTE LYMPHOCYTIC LEUKAEMIA
     Dosage: SEE IMAGE, INTRAVENOUS
     Route: 042
     Dates: start: 20061013, end: 20061016
  5. CLOFARABINE (CLOFARABINE) [Suspect]
     Indication: ACUTE LYMPHOCYTIC LEUKAEMIA
     Dosage: SEE IMAGE, INTRAVENOUS
     Route: 042
     Dates: start: 20061124, end: 20061127
  6. CLOFARABINE (CLOFARABINE) [Suspect]
     Indication: ACUTE LYMPHOCYTIC LEUKAEMIA
     Dosage: SEE IMAGE, INTRAVENOUS
     Route: 042
     Dates: start: 20061124, end: 20061127
  7. CLOFARABINE (CLOFARABINE) [Suspect]
     Indication: ACUTE LYMPHOCYTIC LEUKAEMIA
     Dosage: SEE IMAGE, INTRAVENOUS
     Route: 042
     Dates: start: 20061124, end: 20061127
  8. CLOFARABINE (CLOFARABINE) [Suspect]
     Indication: ACUTE LYMPHOCYTIC LEUKAEMIA
     Dosage: SEE IMAGE, INTRAVENOUS
     Route: 042
     Dates: start: 20061226, end: 20061229
  9. CLOFARABINE (CLOFARABINE) [Suspect]
     Indication: ACUTE LYMPHOCYTIC LEUKAEMIA
     Dosage: SEE IMAGE, INTRAVENOUS
     Route: 042
     Dates: start: 20061226, end: 20061229
  10. CLOFARABINE (CLOFARABINE) [Suspect]
     Indication: ACUTE LYMPHOCYTIC LEUKAEMIA
     Dosage: SEE IMAGE, INTRAVENOUS
     Route: 042
     Dates: start: 20061226, end: 20061229
  11. CLOFARABINE (CLOFARABINE) [Suspect]
     Indication: ACUTE LYMPHOCYTIC LEUKAEMIA
     Dosage: SEE IMAGE, INTRAVENOUS
     Route: 042
     Dates: start: 20070131, end: 20070203
  12. CLOFARABINE (CLOFARABINE) [Suspect]
     Indication: ACUTE LYMPHOCYTIC LEUKAEMIA
     Dosage: SEE IMAGE, INTRAVENOUS
     Route: 042
     Dates: start: 20070131, end: 20070203
  13. CLOFARABINE (CLOFARABINE) [Suspect]
     Indication: ACUTE LYMPHOCYTIC LEUKAEMIA
     Dosage: SEE IMAGE, INTRAVENOUS
     Route: 042
     Dates: start: 20070131, end: 20070203
  14. CLOFARABINE (CLOFARABINE) [Suspect]
     Indication: ACUTE LYMPHOCYTIC LEUKAEMIA
     Dosage: SEE IMAGE, INTRAVENOUS
     Route: 042
     Dates: start: 20070320, end: 20070323
  15. CLOFARABINE (CLOFARABINE) [Suspect]
     Indication: ACUTE LYMPHOCYTIC LEUKAEMIA
     Dosage: SEE IMAGE, INTRAVENOUS
     Route: 042
     Dates: start: 20070320, end: 20070323
  16. CLOFARABINE (CLOFARABINE) [Suspect]
     Indication: ACUTE LYMPHOCYTIC LEUKAEMIA
     Dosage: SEE IMAGE, INTRAVENOUS
     Route: 042
     Dates: start: 20070320, end: 20070323
  17. CLOFARABINE (CLOFARABINE) [Suspect]
     Indication: ACUTE LYMPHOCYTIC LEUKAEMIA
     Dosage: SEE IMAGE, INTRAVENOUS
     Route: 042
     Dates: start: 20070508, end: 20070511
  18. CLOFARABINE (CLOFARABINE) [Suspect]
     Indication: ACUTE LYMPHOCYTIC LEUKAEMIA
     Dosage: SEE IMAGE, INTRAVENOUS
     Route: 042
     Dates: start: 20070508, end: 20070511
  19. CLOFARABINE (CLOFARABINE) [Suspect]
     Indication: ACUTE LYMPHOCYTIC LEUKAEMIA
     Dosage: SEE IMAGE, INTRAVENOUS
     Route: 042
     Dates: start: 20070508, end: 20070511
  20. CLOFARABINE (CLOFARABINE) [Suspect]
     Indication: ACUTE LYMPHOCYTIC LEUKAEMIA
     Dosage: SEE IMAGE, INTRAVENOUS
     Route: 042
     Dates: start: 20070626, end: 20070629
  21. CLOFARABINE (CLOFARABINE) [Suspect]
     Indication: ACUTE LYMPHOCYTIC LEUKAEMIA
     Dosage: SEE IMAGE, INTRAVENOUS
     Route: 042
     Dates: start: 20070626, end: 20070629
  22. CLOFARABINE (CLOFARABINE) [Suspect]
     Indication: ACUTE LYMPHOCYTIC LEUKAEMIA
     Dosage: SEE IMAGE, INTRAVENOUS
     Route: 042
     Dates: start: 20070626, end: 20070629
  23. ETOPOSIDE [Suspect]
     Indication: ACUTE LYMPHOCYTIC LEUKAEMIA
     Dosage: 140 MG, QDX5, INTRAVENOUS
     Route: 042
     Dates: start: 20060908, end: 20060912
  24. CYCLOPHOSPHAMIDE [Suspect]
     Indication: ACUTE LYMPHOCYTIC LEUKAEMIA
     Dosage: 615 MG, QDX5, INTRAVENOUS
     Route: 042
     Dates: start: 20060908, end: 20060912
  25. FLUCONAZOLE [Concomitant]
  26. GABAPENTIN [Concomitant]
  27. BACTRIM [Concomitant]
  28. VALACYCLOVIR [Concomitant]
  29. BISACODYL (BISACODYL) [Concomitant]
  30. NASONEX [Concomitant]
  31. DOCUSATE-SENNA [Concomitant]
  32. ARTIFICIAL TEARS (HYPROMELLOSE) [Concomitant]
  33. NORTRIPTYLINE HCL [Concomitant]
  34. ERYTHROMYCIN OPHTHALMIC (ERYTHROMYCIN) [Concomitant]
  35. CIPROFLOXACIN OPHTHALMIC [Concomitant]
  36. AUGMENTIN '125' [Concomitant]
  37. METHADONE HCL [Concomitant]
  38. MIRALAX [Concomitant]
  39. LACRILUBE OPTHALMIC [Concomitant]
  40. G-CSF (GRANULOCYTE COLONY STIMULATING FACTOR) [Concomitant]

REACTIONS (25)
  - ASPIRATION [None]
  - ATELECTASIS [None]
  - BACTERAEMIA [None]
  - CAECITIS [None]
  - CHEMICAL EYE INJURY [None]
  - CONSTIPATION [None]
  - CULTURE URINE POSITIVE [None]
  - ENTEROCOCCAL INFECTION [None]
  - FEBRILE NEUTROPENIA [None]
  - HAEMATOCRIT DECREASED [None]
  - HAEMOGLOBIN DECREASED [None]
  - HEADACHE [None]
  - HEPATIC STEATOSIS [None]
  - HEPATITIS [None]
  - LUNG CONSOLIDATION [None]
  - LYMPHADENOPATHY [None]
  - PLATELET COUNT DECREASED [None]
  - PNEUMONIA [None]
  - POOR QUALITY SLEEP [None]
  - RESPIRATORY TRACT INFECTION FUNGAL [None]
  - STAPHYLOCOCCAL INFECTION [None]
  - STREPTOCOCCAL INFECTION [None]
  - TRICHIASIS [None]
  - VOMITING [None]
  - WHITE BLOOD CELL COUNT DECREASED [None]
